FAERS Safety Report 18527984 (Version 1)
Quarter: 2020Q4

REPORT INFORMATION
  Report Type: Not Available
  Country: US (occurrence: US)
  Receive Date: 20201120
  Receipt Date: 20201120
  Transmission Date: 20210114
  Serious: No
  Sender: FDA-Public Use
  Company Number: US-NEUROCRINE BIOSCIENCES INC.-2020NBI04131

PATIENT
  Age: 72 Year
  Sex: Female

DRUGS (1)
  1. INGREZZA [Suspect]
     Active Substance: VALBENAZINE
     Indication: TARDIVE DYSKINESIA
     Route: 048
     Dates: start: 20201016

REACTIONS (8)
  - Anger [Unknown]
  - Tremor [Unknown]
  - Pain in extremity [Unknown]
  - Bone pain [Unknown]
  - Depression [Unknown]
  - Gastrooesophageal reflux disease [Unknown]
  - Irritability [Unknown]
  - Impatience [Unknown]

NARRATIVE: CASE EVENT DATE: 20201016
